FAERS Safety Report 5602151-2 (Version None)
Quarter: 2008Q1

REPORT INFORMATION
  Report Type: 
  Country: None (occurrence: None)
  Receive Date: 20080111
  Receipt Date: 20071109
  Transmission Date: 20080703
  Serious: Yes (Other)
  Sender: FDA-Public Use
  Company Number: HQWYE927728APR03

PATIENT
  Age: 62 Year
  Sex: Female

DRUGS (1)
  1. PREMPRO [Suspect]
     Dosage: 1 TABLET DAILY; 0.625MG/UNSPECIFIED, ORAL
     Route: 048

REACTIONS (4)
  - HYPERTENSION [None]
  - MYOCARDIAL INFARCTION [None]
  - PULMONARY EMBOLISM [None]
  - SKIN DISORDER [None]
